FAERS Safety Report 5303258-X (Version None)
Quarter: 2007Q2

REPORT INFORMATION
  Report Type: 
  Country: None (occurrence: None)
  Receive Date: 20070420
  Receipt Date: 20070418
  Transmission Date: 20071010
  Serious: Yes (Life-Threatening, Hospitalization, Disabling)
  Sender: FDA-Public Use
  Company Number: HQWYE898206APR07

PATIENT
  Sex: Male
  Weight: 63.5 kg

DRUGS (8)
  1. AMIODARONE HCL [Suspect]
     Indication: ATRIAL FIBRILLATION
     Route: 048
     Dates: start: 20060519, end: 20070323
  2. ASPIRIN [Concomitant]
     Indication: HYPERTROPHIC CARDIOMYOPATHY
     Route: 048
     Dates: start: 20060501, end: 20070406
  3. SPIRONOLACTONE [Concomitant]
     Indication: HYPERTROPHIC CARDIOMYOPATHY
     Route: 048
     Dates: start: 20060501, end: 20070325
  4. WARFARIN POTASSIUM [Concomitant]
     Indication: ATRIAL FIBRILLATION
     Route: 048
     Dates: start: 20060501, end: 20070329
  5. TAKEPRON [Concomitant]
     Indication: PROPHYLAXIS
     Route: 048
     Dates: start: 20060501, end: 20070406
  6. FUROSEMIDE [Concomitant]
     Indication: HYPERTROPHIC CARDIOMYOPATHY
     Route: 048
     Dates: start: 20060501, end: 20070325
  7. HERBESSER [Concomitant]
     Indication: ATRIAL FIBRILLATION
     Route: 048
     Dates: start: 20060501, end: 20070406
  8. OLMETEC [Concomitant]
     Indication: HYPERTROPHIC CARDIOMYOPATHY
     Route: 048
     Dates: start: 20060501, end: 20070406

REACTIONS (3)
  - EMPHYSEMA [None]
  - INTERSTITIAL LUNG DISEASE [None]
  - PNEUMOTHORAX [None]
